FAERS Safety Report 23038519 (Version 1)
Quarter: 2023Q4

REPORT INFORMATION
  Report Type: Spontaneous
  Country: GB (occurrence: GB)
  Receive Date: 20231006
  Receipt Date: 20231006
  Transmission Date: 20240110
  Serious: Yes (Other)
  Sender: FDA-Public Use
  Company Number: GB-MHRA-MED-202309251103090390-RHLZW

PATIENT
  Age: 29 Year
  Sex: Female

DRUGS (1)
  1. SUMATRIPTAN SUCCINATE [Suspect]
     Active Substance: SUMATRIPTAN SUCCINATE
     Indication: Migraine
     Dosage: 50MG PER TABLET, UP TO TWICE A DAY
     Route: 065

REACTIONS (5)
  - Skin irritation [Recovered/Resolved]
  - Stomatitis [Recovered/Resolved]
  - Malaise [Recovering/Resolving]
  - Illness [Recovered/Resolved]
  - Odynophagia [Recovering/Resolving]

NARRATIVE: CASE EVENT DATE: 20230922
